FAERS Safety Report 5832276-8 (Version None)
Quarter: 2008Q3

REPORT INFORMATION
  Report Type: 
  Country: None (occurrence: None)
  Receive Date: 20080731
  Receipt Date: 20080731
  Transmission Date: 20090109
  Serious: Yes (Hospitalization, Other)
  Sender: FDA-Public Use
  Company Number: None

PATIENT
  Age: 73 Year
  Sex: Female
  Weight: 77.1115 kg

DRUGS (9)
  1. LISINOPRIL AND HYDROCHLOROTHIAZIDE [Suspect]
     Indication: HYPERTENSION
     Dosage: 10/12.5  DAILY PO
     Route: 048
     Dates: start: 20070719, end: 20071005
  2. ACETAMINOPHEN [Concomitant]
  3. MULTIVITAMIN WITH MINERALS [Concomitant]
  4. DILTIAZEM HCL [Concomitant]
  5. FERROUS GLUCONATE [Concomitant]
  6. ASCORBIC ACID [Concomitant]
  7. LEVOFLOXACIN [Concomitant]
  8. ACETAMINOPHEN AND HYDROCODONE BITARTRATE [Concomitant]
  9. HYDROCHLOROTHIAZIDE [Concomitant]

REACTIONS (1)
  - ANGIOEDEMA [None]
